FAERS Safety Report 14307391 (Version 6)
Quarter: 2019Q2

REPORT INFORMATION
  Report Type: Spontaneous
  Country: US (occurrence: US)
  Receive Date: 20171220
  Receipt Date: 20190613
  Transmission Date: 20190711
  Serious: Yes (Hospitalization, Other)
  Sender: FDA-Public Use
  Company Number: US-PFIZER INC-2017539154

PATIENT
  Age: 60 Year
  Sex: Female
  Weight: 113 kg

DRUGS (5)
  1. FENOFIBRATE. [Concomitant]
     Active Substance: FENOFIBRATE
     Indication: BLOOD CHOLESTEROL ABNORMAL
     Dosage: 1 DF, DAILY
  2. FISH OIL [Concomitant]
     Active Substance: FISH OIL
     Indication: BLOOD CHOLESTEROL ABNORMAL
     Dosage: UNK (IN THE MORNING)
  3. HYDROXYZINE PAMOATE. [Suspect]
     Active Substance: HYDROXYZINE PAMOATE
     Indication: VERTIGO
     Dosage: 25 MG, UNK
     Route: 048
     Dates: start: 2002
  4. HYDROXYZINE PAMOATE. [Suspect]
     Active Substance: HYDROXYZINE PAMOATE
     Dosage: 75 MG, DAILY (50 MG AT BEDTIME AND 25 MG DURING DAY)
  5. HYDROXYZINE PAMOATE. [Suspect]
     Active Substance: HYDROXYZINE PAMOATE
     Dosage: 50 MG, EVERY 4 HOURS
     Route: 048
     Dates: start: 2002

REACTIONS (10)
  - Off label use [Unknown]
  - Headache [Not Recovered/Not Resolved]
  - Loss of personal independence in daily activities [Unknown]
  - Somnolence [Unknown]
  - Blindness [Unknown]
  - Migraine [Unknown]
  - Vision blurred [Not Recovered/Not Resolved]
  - Condition aggravated [Unknown]
  - Drug ineffective for unapproved indication [Unknown]
  - Eye pain [Unknown]

NARRATIVE: CASE EVENT DATE: 2002
